FAERS Safety Report 4868437-4 (Version None)
Quarter: 2005Q4

REPORT INFORMATION
  Report Type: 
  Country: None (occurrence: None)
  Receive Date: 20051229
  Receipt Date: 20051221
  Transmission Date: 20060501
  Serious: Yes (Hospitalization, Other)
  Sender: FDA-Public Use
  Company Number: US-AVENTIS-200520762US

PATIENT
  Age: 31 Year
  Sex: Male

DRUGS (2)
  1. LANTUS [Suspect]
     Indication: DIABETES MELLITUS INSULIN-DEPENDENT
     Dosage: DOSE: SLIDNG SCALE UP TO 30U
     Route: 058
     Dates: start: 20020101
  2. POTASSIUM [Concomitant]
     Dosage: DOSE: UNK

REACTIONS (2)
  - HYPOGLYCAEMIA [None]
  - PNEUMONIA [None]
